FAERS Safety Report 12595861 (Version 2)
Quarter: 2016Q3

REPORT INFORMATION
  Report Type: Spontaneous
  Country: JP (occurrence: JP)
  Receive Date: 20160727
  Receipt Date: 20160727
  Transmission Date: 20161109
  Serious: Yes (Hospitalization)
  Sender: FDA-Public Use
  Company Number: JP-CIPLA LTD.-2016JP09842

PATIENT

DRUGS (19)
  1. IRINOTECAN [Suspect]
     Active Substance: IRINOTECAN
     Indication: COLORECTAL CANCER METASTATIC
     Dosage: 125 MG/M2, ON DAYS 1 AND 15
     Route: 065
  2. LEUCOVORIN. [Suspect]
     Active Substance: LEUCOVORIN
     Indication: COLORECTAL CANCER METASTATIC
     Dosage: 200 MG/M2, UNK
     Route: 065
     Dates: start: 201207
  3. TS-1 [Suspect]
     Active Substance: GIMERACIL\OTERACIL\TEGAFUR
     Indication: COLORECTAL CANCER METASTATIC
     Dosage: 40 MG, BID, FOR 2 WEEKS REPEATED EVERY 4 WEEKS
     Route: 065
  4. ALLOPURINOL. [Interacting]
     Active Substance: ALLOPURINOL
     Dosage: 200 MG, DAILY
     Route: 065
  5. WARFARIN [Suspect]
     Active Substance: WARFARIN
     Dosage: 1 MG, UNK
     Route: 065
  6. WARFARIN [Suspect]
     Active Substance: WARFARIN
     Dosage: 1.5 MG, DAILY, PRIOR TO REGORAFENIB
     Route: 065
     Dates: start: 201404
  7. FLUOROURACIL. [Suspect]
     Active Substance: FLUOROURACIL
     Indication: COLORECTAL CANCER METASTATIC
     Dosage: 400 MG/M2, ON DAY 1
     Route: 040
     Dates: start: 201207
  8. NICORANDIL [Concomitant]
     Active Substance: NICORANDIL
     Dosage: 10 MG, DAILY
     Route: 065
  9. OXALIPLATIN. [Suspect]
     Active Substance: OXALIPLATIN
     Indication: COLORECTAL CANCER METASTATIC
     Dosage: 85 MG/M2, UNK
     Route: 065
     Dates: start: 201207
  10. REGORAFENIB [Interacting]
     Active Substance: REGORAFENIB
     Dosage: 80 MG, DAILY, ON DAYS 1 TO 14 EVERY 3 WEEKS
     Dates: end: 201403
  11. REGORAFENIB [Interacting]
     Active Substance: REGORAFENIB
     Dosage: 80 MG, DAILY, RESTARTED
     Route: 065
  12. WARFARIN [Suspect]
     Active Substance: WARFARIN
     Dosage: 1.5 MG, ONE MONTH, BEFORE INITIATION OF TREATMENT WITH REGORAFENIB
     Route: 065
  13. PRAVASTATIN. [Concomitant]
     Active Substance: PRAVASTATIN
     Dosage: 5 MG, DAILY
     Route: 065
  14. WARFARIN [Suspect]
     Active Substance: WARFARIN
     Indication: MYOCARDIAL INFARCTION
     Dosage: 2 MG, DAILY
     Route: 065
  15. SPIRONOLACTONE. [Concomitant]
     Active Substance: SPIRONOLACTONE
     Dosage: 25 MG, DAILY
     Route: 065
  16. WARFARIN [Suspect]
     Active Substance: WARFARIN
     Dosage: 0.5 MG, DAILY
     Route: 065
  17. FLUOROURACIL. [Suspect]
     Active Substance: FLUOROURACIL
     Dosage: 2400 MG/M2, OVER 46 H EVERY 2 WEEKS
     Route: 065
     Dates: start: 201207
  18. REGORAFENIB [Interacting]
     Active Substance: REGORAFENIB
     Indication: COLORECTAL CANCER METASTATIC
     Dosage: 120 MG, DAILY, ON DAYS 1 TO 21 EVERY 4 WEEKS
     Route: 065
     Dates: start: 201310
  19. LEVOTHYROXINE. [Concomitant]
     Active Substance: LEVOTHYROXINE
     Dosage: 75 ?G, DAILY
     Route: 065

REACTIONS (7)
  - International normalised ratio increased [Unknown]
  - Interstitial lung disease [Recovered/Resolved]
  - Disease progression [Unknown]
  - Pneumothorax [Recovered/Resolved]
  - Drug interaction [Unknown]
  - Prothrombin time prolonged [Unknown]
  - Palmar-plantar erythrodysaesthesia syndrome [Unknown]
